FAERS Safety Report 8125761-X (Version None)
Quarter: 2012Q1

REPORT INFORMATION
  Report Type: 
  Country: None (occurrence: None)
  Receive Date: 20120209
  Receipt Date: 20120203
  Transmission Date: 20120608
  Serious: Yes (Hospitalization, Other)
  Sender: FDA-Public Use
  Company Number: HU-AMGEN-HUNSP2012000030

PATIENT
  Age: 65 Year
  Sex: Female
  Weight: 59 kg

DRUGS (2)
  1. ARANESP [Suspect]
     Indication: RENAL FAILURE CHRONIC
     Dosage: 50 MUG, QWK
     Route: 058
     Dates: end: 20111231
  2. ARANESP [Suspect]
     Indication: IRON DEFICIENCY

REACTIONS (3)
  - GASTRITIS EROSIVE [None]
  - DRUG EFFECT DECREASED [None]
  - RENAL CYST [None]
